FAERS Safety Report 5473678-1 (Version None)
Quarter: 2007Q4

REPORT INFORMATION
  Report Type: 
  Country: None (occurrence: None)
  Receive Date: 20071001
  Receipt Date: 20070925
  Transmission Date: 20080405
  Serious: Yes (Other)
  Sender: FDA-Public Use
  Company Number: JP-BOEHRINGER INGELHEIM PHARMACEUTICALS, INC.-2006-BP-09520NB

PATIENT
  Sex: Female
  Weight: 40 kg

DRUGS (5)
  1. BI-SIFROL TABLETS [Suspect]
     Indication: PARKINSON'S DISEASE
     Route: 048
     Dates: start: 20050520
  2. ACECOL [Concomitant]
     Indication: HYPERTENSION
     Route: 048
     Dates: start: 20021029
  3. NORVASK [Concomitant]
     Indication: HYPERTENSION
     Route: 048
     Dates: start: 20060412
  4. UFT [Concomitant]
     Indication: LUNG CANCER METASTATIC
     Route: 048
     Dates: start: 20060106
  5. LEUCOVORIN [Concomitant]
     Indication: LUNG CANCER METASTATIC
     Route: 048
     Dates: start: 20060106

REACTIONS (5)
  - ANAEMIA [None]
  - LARGE INTESTINE CARCINOMA [None]
  - MELAENA [None]
  - NAUSEA [None]
  - SOMNOLENCE [None]
